FAERS Safety Report 8520885-7 (Version None)
Quarter: 2012Q3

REPORT INFORMATION
  Report Type: 
  Country: None (occurrence: None)
  Receive Date: 20120706
  Receipt Date: 20120622
  Transmission Date: 20120928
  Serious: Yes (Life-Threatening)
  Sender: FDA-Public Use
  Company Number: 1329285

PATIENT
  Age: 54 Year
  Sex: Female
  Weight: 64 kg

DRUGS (6)
  1. CYCLOPHOSPHAMIDE [Concomitant]
  2. SODIUM CHLORIDE [Concomitant]
  3. DOCETAXEL [Suspect]
     Indication: BREAST CANCER
     Dosage: 120 MG MILLIGRAM(S), 21 DAY, INTRAVENOUS DRIP
     Route: 041
     Dates: start: 20120503
  4. GRANISETRON [Concomitant]
  5. DEXAMETHASONE [Concomitant]
  6. PREDNISOLONE [Concomitant]

REACTIONS (3)
  - DYSPNOEA [None]
  - HEADACHE [None]
  - GENERALISED ERYTHEMA [None]
